FAERS Safety Report 17641137 (Version 1)
Quarter: 2020Q2

REPORT INFORMATION
  Report Type: Report from Study
  Country: US (occurrence: US)
  Receive Date: 20200407
  Receipt Date: 20200407
  Transmission Date: 20200713
  Serious: Yes (Hospitalization, Other)
  Sender: FDA-Public Use
  Company Number: US-GILEAD-2020-0458098

PATIENT
  Age: 67 Year
  Sex: Male

DRUGS (10)
  1. CARVEDILOL. [Concomitant]
     Active Substance: CARVEDILOL
  2. BUMETANIDE. [Concomitant]
     Active Substance: BUMETANIDE
  3. VITAMIN D3 [Concomitant]
     Active Substance: CHOLECALCIFEROL
  4. ACETAMINOPHEN. [Concomitant]
     Active Substance: ACETAMINOPHEN
  5. PROBIOTICS NOS [Concomitant]
     Active Substance: PROBIOTICS NOS
  6. IDELALISIB [Suspect]
     Active Substance: IDELALISIB
     Indication: CHRONIC LYMPHOCYTIC LEUKAEMIA
     Dosage: 100 MG, BID
     Route: 048
  7. POTASSIUM [Concomitant]
     Active Substance: POTASSIUM
  8. INCRUSE ELLIPTA [Concomitant]
     Active Substance: UMECLIDINIUM BROMIDE
  9. VITAMINS NOS [Concomitant]
     Active Substance: VITAMINS
  10. VENTOLIN [Concomitant]
     Active Substance: ALBUTEROL SULFATE

REACTIONS (2)
  - Pneumonia [Not Recovered/Not Resolved]
  - Thrombosis [Unknown]

NARRATIVE: CASE EVENT DATE: 202003
